FAERS Safety Report 6717941-2 (Version None)
Quarter: 2010Q2

REPORT INFORMATION
  Report Type: 
  Country: None (occurrence: None)
  Receive Date: 20100510
  Receipt Date: 20100427
  Transmission Date: 20101027
  Serious: Yes (Other)
  Sender: FDA-Public Use
  Company Number: PHHY2010AU27237

PATIENT
  Age: 12 Year
  Sex: Female

DRUGS (4)
  1. PAMIDRONATE DISODIUM [Suspect]
     Indication: OSTEOLYSIS
     Dosage: 0.5 MG/KG, UNK
  2. PAMIDRONATE DISODIUM [Suspect]
     Dosage: 1 MG/KG, UNK
  3. CALCIUM [Concomitant]
  4. VITAMIN D [Concomitant]

REACTIONS (5)
  - FEMUR FRACTURE [None]
  - FOOT DEFORMITY [None]
  - PYREXIA [None]
  - SURGERY [None]
  - UNEQUAL LIMB LENGTH [None]
